FAERS Safety Report 12267456 (Version 1)
Quarter: 2016Q2

REPORT INFORMATION
  Report Type: Report from Study
  Country: JP (occurrence: JP)
  Receive Date: 20160414
  Receipt Date: 20160414
  Transmission Date: 20160815
  Serious: Yes (Death, Life-Threatening)
  Sender: FDA-Public Use
  Company Number: JP-ACTELION-A-CH2015-116230

PATIENT
  Age: 19 Year
  Sex: Male

DRUGS (18)
  1. PIMOBENDAN [Concomitant]
     Active Substance: PIMOBENDAN
  2. ALLOPURINOL. [Concomitant]
     Active Substance: ALLOPURINOL
  3. VELETRI [Suspect]
     Active Substance: EPOPROSTENOL
     Dosage: 7.56 NG/KG, PER MIN
     Route: 042
     Dates: start: 20140424, end: 20140524
  4. VELETRI [Suspect]
     Active Substance: EPOPROSTENOL
     Dosage: 22.7 NG/KG, PER MIN
     Route: 042
     Dates: start: 20140624, end: 20140924
  5. TOLVAPTAN [Concomitant]
     Active Substance: TOLVAPTAN
     Dosage: UNK
     Dates: start: 20141127
  6. VELETRI [Suspect]
     Active Substance: EPOPROSTENOL
     Dosage: 15.9 NG/KG, PER MIN
     Route: 042
     Dates: start: 20140524, end: 20140624
  7. TRACLEER [Concomitant]
     Active Substance: BOSENTAN
     Indication: PULMONARY ARTERIAL HYPERTENSION
     Route: 048
  8. FUROSEMIDE. [Concomitant]
     Active Substance: FUROSEMIDE
  9. VELETRI [Suspect]
     Active Substance: EPOPROSTENOL
     Indication: PULMONARY ARTERIAL HYPERTENSION
     Dosage: 58.8 NG/KG, PER MIN
     Route: 042
     Dates: start: 20141224, end: 20150402
  10. VELETRI [Suspect]
     Active Substance: EPOPROSTENOL
     Dosage: 39 NG/KG, PER MIN
     Route: 042
     Dates: start: 20140924, end: 20141224
  11. VELETRI [Suspect]
     Active Substance: EPOPROSTENOL
     Dosage: 0.28 NG/KG, PER MIN
     Route: 042
     Dates: start: 20140324, end: 20140424
  12. SILDENAFIL CITRATE. [Concomitant]
     Active Substance: SILDENAFIL CITRATE
  13. DOBUTAMINE HYDROCHLORIDE. [Concomitant]
     Active Substance: DOBUTAMINE HYDROCHLORIDE
     Dosage: UNK
     Dates: start: 20140324
  14. TADALAFIL [Concomitant]
     Active Substance: TADALAFIL
  15. BERAPROST SODIUM [Concomitant]
     Active Substance: BERAPROST SODIUM
  16. SPIRONOLACTONE. [Concomitant]
     Active Substance: SPIRONOLACTONE
  17. MILRINONE [Concomitant]
     Active Substance: MILRINONE
     Indication: CARDIAC FAILURE
     Dosage: UNK
     Dates: start: 20141106
  18. OXYGEN. [Concomitant]
     Active Substance: OXYGEN

REACTIONS (7)
  - Hypoxia [Fatal]
  - Pulmonary arterial hypertension [Fatal]
  - Septic shock [Fatal]
  - Cardiac failure [Fatal]
  - Acute kidney injury [Fatal]
  - Eczema [Not Recovered/Not Resolved]
  - Condition aggravated [Fatal]

NARRATIVE: CASE EVENT DATE: 20140923
